FAERS Safety Report 4662326-6 (Version None)
Quarter: 2005Q2

REPORT INFORMATION
  Report Type: 
  Country: None (occurrence: None)
  Receive Date: 20050512
  Receipt Date: 20050429
  Transmission Date: 20051028
  Serious: Yes (Hospitalization)
  Sender: FDA-Public Use
  Company Number: 2005070483

PATIENT
  Age: 66 Year
  Sex: Male

DRUGS (6)
  1. AMLODIPINE [Suspect]
     Indication: HYPERTENSION
  2. CYPROTERONE ACETATE (CYPROTERONE ACETATE) [Suspect]
     Indication: BENIGN PROSTATIC HYPERPLASIA
     Dosage: 300 MG (100 MG, DAILY INTERVAL: EVERY DAY)
  3. SIMVASTATIN [Suspect]
     Indication: HYPERCHOLESTEROLAEMIA
  4. ALLOPURINOL [Concomitant]
  5. CANDESARTAN (CANDESARTAN) [Concomitant]
  6. OMEPRAZOLE [Concomitant]

REACTIONS (10)
  - ASPARTATE AMINOTRANSFERASE INCREASED [None]
  - BLOOD BILIRUBIN INCREASED [None]
  - BLOOD CREATININE INCREASED [None]
  - BLOOD UREA INCREASED [None]
  - BLOOD URINE PRESENT [None]
  - DRUG INTERACTION [None]
  - GAMMA-GLUTAMYLTRANSFERASE INCREASED [None]
  - PROSTATE CANCER [None]
  - PROTEIN URINE PRESENT [None]
  - RHABDOMYOLYSIS [None]
